FAERS Safety Report 5565592-8 (Version None)
Quarter: 2007Q4

REPORT INFORMATION
  Report Type: 
  Country: None (occurrence: None)
  Receive Date: 20071218
  Receipt Date: 20071214
  Transmission Date: 20080405
  Serious: Yes (Other)
  Sender: FDA-Public Use
  Company Number: AU-ROXANE LABORATORIES, INC-2007-DE-07364GD

PATIENT
  Sex: Male

DRUGS (1)
  1. SERTRALINE [Suspect]
     Indication: HYPOTENSION

REACTIONS (1)
  - DRUG INEFFECTIVE [None]
